FAERS Safety Report 12438827 (Version 1)
Quarter: 2016Q2

REPORT INFORMATION
  Report Type: Report from Study
  Country: GR (occurrence: GR)
  Receive Date: 20160606
  Receipt Date: 20160606
  Transmission Date: 20160815
  Serious: Yes (Death)
  Sender: FDA-Public Use
  Company Number: GR-AMGEN-GRCNI2016071004

PATIENT
  Age: 65 Year
  Sex: Female

DRUGS (2)
  1. PACLITAXEL. [Concomitant]
     Active Substance: PACLITAXEL
     Dosage: 190 MG, QWK
     Route: 042
     Dates: start: 20160219, end: 20160219
  2. DENOSUMAB [Suspect]
     Active Substance: DENOSUMAB
     Indication: PROPHYLAXIS
     Dosage: UNK
     Route: 065
     Dates: start: 20150812, end: 20160111

REACTIONS (3)
  - Death [Fatal]
  - Intestinal obstruction [Fatal]
  - Sepsis [Fatal]

NARRATIVE: CASE EVENT DATE: 20160524
